FAERS Safety Report 7865724-2 (Version None)
Quarter: 2011Q4

REPORT INFORMATION
  Report Type: 
  Country: None (occurrence: None)
  Receive Date: 20111028
  Receipt Date: 20110214
  Transmission Date: 20120403
  Serious: No
  Sender: FDA-Public Use
  Company Number: US-GLAXOSMITHKLINE-A0913439A

PATIENT
  Sex: Male

DRUGS (5)
  1. PROAIR HFA [Concomitant]
  2. VITAMIN TAB [Concomitant]
  3. ADVAIR DISKUS 100/50 [Suspect]
     Indication: EMPHYSEMA
     Dosage: 1PUFF TWICE PER DAY
     Route: 055
     Dates: start: 20110209
  4. VERAPAMIL [Concomitant]
  5. ANTIOXIDANTS [Concomitant]

REACTIONS (1)
  - MUSCLE SPASMS [None]
